FAERS Safety Report 24276026 (Version 1)
Quarter: 2024Q3

REPORT INFORMATION
  Report Type: Spontaneous
  Country: US (occurrence: US)
  Receive Date: 20240903
  Receipt Date: 20240903
  Transmission Date: 20241017
  Serious: Yes (Other)
  Sender: WOCKHARDT
  Company Number: US-WOCKHARDT LIMITED-2024WLD000028

PATIENT
  Age: 52 Year
  Sex: Male

DRUGS (2)
  1. NICARDIPINE HYDROCHLORIDE [Suspect]
     Active Substance: NICARDIPINE HYDROCHLORIDE
     Indication: Hypertension
     Dosage: 2.5 MILLIGRAM PER HOUR
     Route: 042
  2. NICARDIPINE HYDROCHLORIDE [Suspect]
     Active Substance: NICARDIPINE HYDROCHLORIDE
     Dosage: 12.5 MILLIGRAM PER HOUR
     Route: 042

REACTIONS (1)
  - Anaphylactoid reaction [Recovered/Resolved]
